FAERS Safety Report 12483285 (Version 1)
Quarter: 2016Q2

REPORT INFORMATION
  Report Type: Spontaneous
  Country: FR (occurrence: FR)
  Receive Date: 20160621
  Receipt Date: 20160621
  Transmission Date: 20160815
  Serious: Yes (Hospitalization)
  Sender: FDA-Public Use
  Company Number: FR-ROCHE-1778391

PATIENT
  Age: 58 Year
  Sex: Male

DRUGS (8)
  1. AMLOR [Concomitant]
     Active Substance: AMLODIPINE BESYLATE
  2. KARDEGIC [Concomitant]
     Active Substance: ASPIRIN LYSINE
  3. LANTUS [Concomitant]
     Active Substance: INSULIN GLARGINE
  4. EUPRESSYL [Concomitant]
     Active Substance: URAPIDIL
  5. CELLCEPT [Suspect]
     Active Substance: MYCOPHENOLATE MOFETIL\MYCOPHENOLATE MOFETIL HYDROCHLORIDE
     Indication: RENAL TRANSPLANT
     Route: 048
     Dates: start: 20121010
  6. ATENOLOL. [Concomitant]
     Active Substance: ATENOLOL
  7. PROGRAF [Suspect]
     Active Substance: TACROLIMUS\TACROLIMUS ANHYDROUS
     Indication: PRODUCT USED FOR UNKNOWN INDICATION
     Route: 048
     Dates: start: 20121010
  8. CORTANCYL [Suspect]
     Active Substance: PREDNISONE
     Indication: PRODUCT USED FOR UNKNOWN INDICATION
     Route: 048
     Dates: start: 20121010

REACTIONS (1)
  - Prostatitis [Recovering/Resolving]

NARRATIVE: CASE EVENT DATE: 20160110
